FAERS Safety Report 15604456 (Version 2)
Quarter: 2018Q4

REPORT INFORMATION
  Report Type: Spontaneous
  Country: VE (occurrence: VE)
  Receive Date: 20181110
  Receipt Date: 20181124
  Transmission Date: 20190205
  Serious: Yes (Death, Hospitalization)
  Sender: FDA-Public Use
  Company Number: PHHY2018VE151441

PATIENT
  Age: 39 Year
  Sex: Male
  Weight: 104 kg

DRUGS (1)
  1. GLIVEC [Suspect]
     Active Substance: IMATINIB MESYLATE
     Indication: CHRONIC MYELOID LEUKAEMIA
     Dosage: 400 MG, QD
     Route: 048
     Dates: start: 20181025

REACTIONS (16)
  - Malaise [Unknown]
  - Headache [Unknown]
  - Chronic myeloid leukaemia [Unknown]
  - Nausea [Unknown]
  - Post procedural complication [Fatal]
  - Abdominal pain upper [Unknown]
  - Malignant neoplasm progression [Unknown]
  - White blood cell count increased [Unknown]
  - Splenomegaly [Unknown]
  - Abdominal pain [Unknown]
  - Respiratory arrest [Unknown]
  - Splenic rupture [Unknown]
  - Intra-abdominal haemorrhage [Unknown]
  - Haemoglobin decreased [Unknown]
  - Back pain [Unknown]
  - Pain in extremity [Unknown]

NARRATIVE: CASE EVENT DATE: 20181030
